FAERS Safety Report 10059098 (Version 1)
Quarter: 2014Q2

REPORT INFORMATION
  Report Type: Report from Study
  Country: US (occurrence: US)
  Receive Date: 20140404
  Receipt Date: 20140404
  Transmission Date: 20141212
  Serious: Yes (Hospitalization)
  Sender: FDA-Public Use
  Company Number: US-BRISTOL-MYERS SQUIBB COMPANY-20579173

PATIENT
  Age: 56 Year
  Sex: Male
  Weight: 100 kg

DRUGS (7)
  1. CETUXIMAB [Suspect]
     Dates: start: 20140130
  2. ATIVAN [Suspect]
  3. VIBRAMYCIN [Suspect]
  4. PROCHLORPERAZINE MALEATE [Suspect]
  5. SCOPOLAMINE [Suspect]
  6. HYZAAR [Concomitant]
  7. HYDROCODONE + ACETAMINOPHEN [Concomitant]
     Dosage: 1DF=10MG+325MG/15ML ORAL SOLUTION

REACTIONS (1)
  - Dysphagia [Not Recovered/Not Resolved]
